FAERS Safety Report 21915031 (Version 1)
Quarter: 2023Q1

REPORT INFORMATION
  Report Type: Spontaneous
  Country: US (occurrence: US)
  Receive Date: 20230126
  Receipt Date: 20230126
  Transmission Date: 20230418
  Serious: No
  Sender: FDA-Public Use
  Company Number: US-CATALYST PHARMACEUTICALS, INC-2022CAT00700

PATIENT
  Sex: Female

DRUGS (2)
  1. FIRDAPSE [Suspect]
     Active Substance: AMIFAMPRIDINE PHOSPHATE
     Indication: Myasthenic syndrome
     Dosage: 80 MG A DAY TOTAL IN DIVIDED DOSES
     Route: 048
     Dates: start: 20220924
  2. COVID-19 VACCINE NOS [Suspect]
     Active Substance: COVID-19 VACCINE NOS
     Dosage: UNK
     Dates: start: 20220928, end: 20220928

REACTIONS (3)
  - Arthralgia [Recovering/Resolving]
  - Myalgia [Recovering/Resolving]
  - Musculoskeletal pain [Recovering/Resolving]

NARRATIVE: CASE EVENT DATE: 20220101
